FAERS Safety Report 18207619 (Version 1)
Quarter: 2020Q3

REPORT INFORMATION
  Report Type: Spontaneous
  Country: US (occurrence: US)
  Receive Date: 20200828
  Receipt Date: 20200828
  Transmission Date: 20201103
  Serious: Yes (Hospitalization)
  Sender: FDA-Public Use
  Company Number: None

PATIENT
  Age: 49 Year
  Sex: Female

DRUGS (17)
  1. ENBREL [Suspect]
     Active Substance: ETANERCEPT
     Indication: RHEUMATOID ARTHRITIS
     Route: 058
     Dates: start: 20200703
  2. LORAZEPAM. [Concomitant]
     Active Substance: LORAZEPAM
  3. PREDNISONE. [Concomitant]
     Active Substance: PREDNISONE
  4. QUETIAPINE. [Concomitant]
     Active Substance: QUETIAPINE
  5. GABAPENTIN. [Concomitant]
     Active Substance: GABAPENTIN
  6. TRAZODONE [Concomitant]
     Active Substance: TRAZODONE HYDROCHLORIDE
  7. ESZOPICLONE. [Concomitant]
     Active Substance: ESZOPICLONE
  8. SALFASALAZIN [Concomitant]
  9. DULOXETINE. [Suspect]
     Active Substance: DULOXETINE
  10. FOLIC ACID. [Concomitant]
     Active Substance: FOLIC ACID
  11. DESVENLAFAX [Concomitant]
  12. TRAMADOL HCL [Concomitant]
     Active Substance: TRAMADOL HYDROCHLORIDE
  13. APAP/CODEINE [Concomitant]
     Active Substance: ACETAMINOPHEN\CODEINE PHOSPHATE
  14. HYDRO/APAP [Concomitant]
     Active Substance: ACETAMINOPHEN\HYDROCODONE
  15. METHOTREXATE. [Concomitant]
     Active Substance: METHOTREXATE
  16. VENLAFAXINE [Concomitant]
     Active Substance: VENLAFAXINE HYDROCHLORIDE
  17. POT CL MICRO [Concomitant]

REACTIONS (1)
  - Rheumatoid arthritis [None]

NARRATIVE: CASE EVENT DATE: 20200811
